FAERS Safety Report 5335555-6 (Version None)
Quarter: 2007Q2

REPORT INFORMATION
  Report Type: 
  Country: None (occurrence: None)
  Receive Date: 20070522
  Receipt Date: 20070511
  Transmission Date: 20071010
  Serious: Yes (Hospitalization)
  Sender: FDA-Public Use
  Company Number: 2007BI008733

PATIENT
  Age: 73 Year
  Sex: Female

DRUGS (15)
  1. AVONEX [Suspect]
     Indication: MULTIPLE SCLEROSIS
     Dosage: 30 UG;QW; IM
     Route: 030
     Dates: start: 19970601
  2. KLONOPIN [Concomitant]
  3. LIPITOR [Concomitant]
  4. LASIX [Concomitant]
  5. KLOR-CON [Concomitant]
  6. ASPIRIN [Concomitant]
  7. COLACE [Concomitant]
  8. FOSAMAX [Concomitant]
  9. AMOXICILLIN [Concomitant]
  10. ASCORBIC ACID [Concomitant]
  11. CALTRATE D [Concomitant]
  12. CENTRUM SILVER [Concomitant]
  13. OMEGA 3 [Concomitant]
  14. NIACIN [Concomitant]
  15. CO Q10 [Concomitant]

REACTIONS (2)
  - FALL [None]
  - TOOTH FRACTURE [None]
